FAERS Safety Report 19069962 (Version 1)
Quarter: 2021Q1

REPORT INFORMATION
  Report Type: Spontaneous
  Country: US (occurrence: US)
  Receive Date: 20210329
  Receipt Date: 20210329
  Transmission Date: 20210420
  Serious: No
  Sender: FDA-Public Use
  Company Number: US-PFIZER INC-2021305538

PATIENT
  Age: 44 Year
  Sex: Male

DRUGS (1)
  1. RUXIENCE [Suspect]
     Active Substance: RITUXIMAB-PVVR
     Indication: IMMUNE THROMBOCYTOPENIA
     Dosage: 1040 MG, (Q7D)
     Route: 042
     Dates: start: 20210210

REACTIONS (3)
  - Therapeutic product effect delayed [Unknown]
  - Platelet count decreased [Unknown]
  - Off label use [Unknown]

NARRATIVE: CASE EVENT DATE: 20210210
